FAERS Safety Report 9961894 (Version 1)
Quarter: 2014Q1

REPORT INFORMATION
  Report Type: Report from Study
  Country: US (occurrence: US)
  Receive Date: 20140305
  Receipt Date: 20140305
  Transmission Date: 20141002
  Serious: No
  Sender: FDA-Public Use
  Company Number: US-ABBVIE-13P-163-1111627-00

PATIENT
  Sex: Female

DRUGS (6)
  1. HUMIRA [Suspect]
     Indication: CROHN^S DISEASE
     Dates: start: 20130215
  2. FOLIC ACID [Concomitant]
     Indication: CROHN^S DISEASE
     Dosage: 1MG DAILY
  3. LEXAPRO [Concomitant]
     Indication: ANXIETY
  4. MICROGESTIN [Concomitant]
     Indication: CONTRACEPTION
     Dosage: DAILY
  5. MULTIPLE VITAMINS [Concomitant]
     Indication: PRODUCT USED FOR UNKNOWN INDICATION
  6. LIALDA [Concomitant]
     Indication: CROHN^S DISEASE
     Dosage: 4 TABS DAILY

REACTIONS (6)
  - Skin irritation [Unknown]
  - Rash generalised [Not Recovered/Not Resolved]
  - Rash pruritic [Not Recovered/Not Resolved]
  - Skin fissures [Unknown]
  - Skin haemorrhage [Unknown]
  - Scab [Unknown]
